FAERS Safety Report 9665525 (Version 1)
Quarter: 2013Q4

REPORT INFORMATION
  Report Type: Spontaneous
  Country: US (occurrence: None)
  Receive Date: 20131031
  Receipt Date: 20131031
  Transmission Date: 20140711
  Serious: Yes (Hospitalization)
  Sender: FDA-Public Use
  Company Number: None

PATIENT
  Age: 83 Year
  Sex: Male
  Weight: 63.5 kg

DRUGS (10)
  1. LINEZOLID [Suspect]
     Indication: ENDOCARDITIS ENTEROCOCCAL
     Route: 042
     Dates: start: 20110816, end: 20110824
  2. PIPERACILLIN-TAZOBACTAM [Concomitant]
  3. ACETAMINOPHEN [Concomitant]
  4. CHLORHEXIDINE [Concomitant]
  5. MAGNESIUM SULFATE [Concomitant]
  6. INSULIN ASPART [Concomitant]
  7. AMIDARONE [Concomitant]
  8. RANITIDINE [Concomitant]
  9. FENTANYL [Concomitant]
  10. NOREPINEPHRINE [Concomitant]

REACTIONS (1)
  - Platelet count decreased [None]
